FAERS Safety Report 20502197 (Version 1)
Quarter: 2022Q1

REPORT INFORMATION
  Report Type: Spontaneous
  Country: US (occurrence: US)
  Receive Date: 20220222
  Receipt Date: 20220222
  Transmission Date: 20220423
  Serious: No
  Sender: FDA-Public Use
  Company Number: US-NOVOPROD-801663

PATIENT
  Age: 56 Year
  Sex: Female

DRUGS (3)
  1. SAXENDA [Suspect]
     Active Substance: LIRAGLUTIDE
     Dosage: 1.2 MG
     Route: 065
  2. SAXENDA [Suspect]
     Active Substance: LIRAGLUTIDE
     Indication: Product used for unknown indication
     Dosage: 1.8MG
     Route: 065
     Dates: start: 20210304
  3. PANTOPRAZOLE [Concomitant]
     Active Substance: PANTOPRAZOLE
     Indication: Product used for unknown indication
     Dosage: UNK
     Route: 065

REACTIONS (3)
  - Oropharyngeal pain [Recovered/Resolved]
  - Dyspepsia [Recovered/Resolved]
  - Eructation [Recovered/Resolved]

NARRATIVE: CASE EVENT DATE: 20210322
